FAERS Safety Report 8159833-0 (Version None)
Quarter: 2012Q1

REPORT INFORMATION
  Report Type: 
  Country: None (occurrence: None)
  Receive Date: 20120223
  Receipt Date: 20120220
  Transmission Date: 20120608
  Serious: Yes (Other)
  Sender: FDA-Public Use
  Company Number: DE-PFIZER INC-2012044366

PATIENT
  Age: 49 Year
  Sex: Female

DRUGS (2)
  1. LYRICA [Suspect]
     Indication: NEURALGIA
     Dosage: 25 MG, 3X/DAY
     Dates: start: 20120114
  2. LYRICA [Suspect]
     Dosage: 75 MG, 1X/DAY

REACTIONS (7)
  - APHASIA [None]
  - OEDEMA [None]
  - CARDIAC DISORDER [None]
  - DYSURIA [None]
  - FALL [None]
  - DIZZINESS [None]
  - PAIN [None]
